FAERS Safety Report 17080450 (Version 1)
Quarter: 2019Q4

REPORT INFORMATION
  Report Type: Spontaneous
  Country: SE (occurrence: SE)
  Receive Date: 20191127
  Receipt Date: 20191127
  Transmission Date: 20200122
  Serious: Yes (Hospitalization)
  Sender: FDA-Public Use
  Company Number: SE-JNJFOC-20191136910

PATIENT
  Sex: Female

DRUGS (2)
  1. IPREN UNSPECIFIED [Suspect]
     Active Substance: IBUPROFEN
     Indication: PRODUCT USED FOR UNKNOWN INDICATION
     Route: 048
     Dates: start: 20180310, end: 20180310
  2. LERGIGAN                           /00033002/ [Suspect]
     Active Substance: PROMETHAZINE HYDROCHLORIDE
     Indication: PRODUCT USED FOR UNKNOWN INDICATION
     Route: 048
     Dates: start: 20180310, end: 20180310

REACTIONS (5)
  - Intentional overdose [Unknown]
  - Fatigue [Unknown]
  - Abdominal pain [Unknown]
  - Intentional self-injury [Unknown]
  - Back pain [Unknown]

NARRATIVE: CASE EVENT DATE: 20180310
